FAERS Safety Report 13679750 (Version 2)
Quarter: 2017Q3

REPORT INFORMATION
  Report Type: Spontaneous
  Country: GB (occurrence: GB)
  Receive Date: 20170622
  Receipt Date: 20170719
  Transmission Date: 20171127
  Serious: Yes (Other)
  Sender: FDA-Public Use
  Company Number: GB-PFIZER INC-2017220814

PATIENT
  Age: 8 Year
  Sex: Male

DRUGS (4)
  1. CALCIUM CARBONATE. [Concomitant]
     Active Substance: CALCIUM CARBONATE
  2. ZARONTIN [Suspect]
     Active Substance: ETHOSUXIMIDE
     Indication: ACQUIRED EPILEPTIC APHASIA
     Dosage: UNK UNK, 2X/DAY
  3. RANITIDINE. [Concomitant]
     Active Substance: RANITIDINE
     Dosage: UNK
  4. MELATONIN [Concomitant]
     Active Substance: MELATONIN
     Dosage: UNK

REACTIONS (5)
  - Fatigue [Unknown]
  - Emotional disorder [Unknown]
  - Seizure [Unknown]
  - Condition aggravated [Unknown]
  - Mental disorder [Unknown]
